FAERS Safety Report 8542210-8 (Version None)
Quarter: 2012Q3

REPORT INFORMATION
  Report Type: 
  Country: None (occurrence: None)
  Receive Date: 20120726
  Receipt Date: 20111129
  Transmission Date: 20120928
  Serious: No
  Sender: FDA-Public Use
  Company Number: US-ASTRAZENECA-2011SE61377

PATIENT
  Age: 71 Year
  Sex: Female
  Weight: 70.8 kg

DRUGS (10)
  1. SEROQUEL [Suspect]
     Route: 048
  2. SEROQUEL [Suspect]
     Indication: BIPOLAR DISORDER
     Route: 048
  3. ROPINIROLE [Concomitant]
     Indication: RESTLESS LEGS SYNDROME
  4. TEKTURMA HCT [Concomitant]
     Indication: HYPERTENSION
  5. DEPAKOTE [Concomitant]
     Indication: BIPOLAR DISORDER
  6. METOCARBEMOL GENERIC [Concomitant]
     Indication: MUSCLE RELAXANT THERAPY
  7. NEURONTIN [Concomitant]
     Indication: RESTLESS LEGS SYNDROME
  8. OXYCODONE HCL [Concomitant]
     Indication: ARTHRITIS
  9. DICLOPENAC [Concomitant]
     Indication: ARTHRITIS
  10. VERAPAMIL [Concomitant]
     Indication: HYPERTENSION

REACTIONS (3)
  - SEDATION [None]
  - BIPOLAR DISORDER [None]
  - INITIAL INSOMNIA [None]
